FAERS Safety Report 22163487 (Version 2)
Quarter: 2023Q2

REPORT INFORMATION
  Report Type: Report from Study
  Country: US (occurrence: US)
  Receive Date: 20230401
  Receipt Date: 20230404
  Transmission Date: 20230721
  Serious: No
  Sender: FDA-Public Use
  Company Number: US-002147023-NVSC2023US075947

PATIENT
  Sex: Female
  Weight: 48.98 kg

DRUGS (2)
  1. TREPROSTINIL [Suspect]
     Active Substance: TREPROSTINIL
     Indication: Pulmonary arterial hypertension
     Dosage: UNK (60 NG/KG/ MIN)
     Route: 042
     Dates: start: 20190614
  2. ADCIRCA [Concomitant]
     Active Substance: TADALAFIL
     Indication: Pulmonary arterial hypertension
     Route: 065

REACTIONS (4)
  - Diarrhoea [Unknown]
  - Flatulence [Unknown]
  - Weight decreased [Unknown]
  - Abdominal pain upper [Unknown]
